FAERS Safety Report 8144143-8 (Version None)
Quarter: 2012Q1

REPORT INFORMATION
  Report Type: 
  Country: None (occurrence: None)
  Receive Date: 20120217
  Receipt Date: 20120210
  Transmission Date: 20120608
  Serious: Yes (Other)
  Sender: FDA-Public Use
  Company Number: TW-JNJFOC-20120207271

PATIENT
  Age: 39 Year
  Sex: Female

DRUGS (2)
  1. MINOXIDIL [Suspect]
     Route: 061
  2. MINOXIDIL [Suspect]
     Indication: PRODUCT USED FOR UNKNOWN INDICATION
     Dosage: CORRECT DOSAGE
     Route: 061
     Dates: start: 20111201

REACTIONS (5)
  - APPLICATION SITE HYPERSENSITIVITY [None]
  - INCORRECT DOSE ADMINISTERED [None]
  - OCULAR DISCOMFORT [None]
  - WRONG DRUG ADMINISTERED [None]
  - ACCIDENTAL EXPOSURE [None]
